FAERS Safety Report 15557743 (Version 3)
Quarter: 2019Q2

REPORT INFORMATION
  Report Type: Spontaneous
  Country: JP (occurrence: JP)
  Receive Date: 20181027
  Receipt Date: 20190415
  Transmission Date: 20190711
  Serious: Yes (Hospitalization)
  Sender: FDA-Public Use
  Company Number: JP-ROCHE-2206460

PATIENT
  Age: 11 Year
  Sex: Male

DRUGS (2)
  1. THEOPHYLLINE [Suspect]
     Active Substance: THEOPHYLLINE ANHYDROUS
     Indication: ASTHMA
     Route: 065
  2. XOLAIR [Suspect]
     Active Substance: OMALIZUMAB
     Indication: CHILDHOOD ASTHMA
     Route: 058

REACTIONS (2)
  - Asthma [Recovered/Resolved]
  - Therapeutic product effect incomplete [Unknown]
